FAERS Safety Report 20771791 (Version 1)
Quarter: 2022Q2

REPORT INFORMATION
  Report Type: Spontaneous
  Country: US (occurrence: US)
  Receive Date: 20220430
  Receipt Date: 20220430
  Transmission Date: 20220720
  Serious: Yes (Other)
  Sender: FDA-Public Use
  Company Number: US-drreddys-LIT/USA/22/0149449

PATIENT
  Age: 4 Month
  Sex: Female
  Weight: 5.5 kg

DRUGS (8)
  1. SEVELAMER CARBONATE FOR ORAL SUSPENSION [Suspect]
     Active Substance: SEVELAMER CARBONATE
     Indication: Hyperphosphataemia
  2. CHOLECALCIFEROL [Concomitant]
     Active Substance: CHOLECALCIFEROL
     Indication: Hypoparathyroidism
     Dosage: 1000 UNITS BY G-TUBE DAILY
  3. CHOLECALCIFEROL [Concomitant]
     Active Substance: CHOLECALCIFEROL
     Indication: Hyperphosphataemia
  4. CALCIUM CARBONATE [Concomitant]
     Active Substance: CALCIUM CARBONATE
     Indication: Hypoparathyroidism
     Dosage: 840MG BY G-TUBE FIVE TIMES DAILY (EQUIVALENT TO 760 MG/KG/DAY ELEMENTAL CALCIUM)
  5. CALCIUM CARBONATE [Concomitant]
     Active Substance: CALCIUM CARBONATE
     Indication: Hyperphosphataemia
  6. CALCITRIOL [Concomitant]
     Active Substance: CALCITRIOL
     Indication: Hypoparathyroidism
     Dosage: 1MCG BY G-TUBE DAILY
  7. CALCITRIOL [Concomitant]
     Active Substance: CALCITRIOL
     Indication: Hyperphosphataemia
  8. CALCIUM GLUCONATE [Concomitant]
     Active Substance: CALCIUM GLUCONATE
     Indication: Product used for unknown indication

REACTIONS (1)
  - Drug ineffective [Unknown]
